FAERS Safety Report 23725012 (Version 2)
Quarter: 2024Q2

REPORT INFORMATION
  Report Type: Spontaneous
  Country: US (occurrence: US)
  Receive Date: 20240410
  Receipt Date: 20240529
  Transmission Date: 20240715
  Serious: Yes (Hospitalization)
  Sender: FDA-Public Use
  Company Number: US-SA-SAC20240408001355

PATIENT
  Age: 60 Year
  Sex: Female
  Weight: 87 kg

DRUGS (1)
  1. DUPIXENT [Suspect]
     Active Substance: DUPILUMAB
     Indication: Dermatitis atopic
     Dosage: 300 MG, QOW
     Route: 058
     Dates: start: 20230628

REACTIONS (3)
  - Throat tightness [Unknown]
  - Post procedural haematoma [Recovering/Resolving]
  - Spinal fusion surgery [Unknown]

NARRATIVE: CASE EVENT DATE: 20240101
